FAERS Safety Report 8585205-0 (Version None)
Quarter: 2012Q3

REPORT INFORMATION
  Report Type: 
  Country: None (occurrence: None)
  Receive Date: 20120810
  Receipt Date: 20120807
  Transmission Date: 20120928
  Serious: Yes (Death, Other)
  Sender: FDA-Public Use
  Company Number: PHHY2012US068557

PATIENT
  Age: 59 Year
  Sex: Male

DRUGS (3)
  1. OCTREOTIDE ACETATE [Suspect]
     Indication: MENINGIOMA
     Dosage: 150 UG, BID (ON DAY 1)
     Route: 058
  2. OCTREOTIDE ACETATE [Suspect]
     Dosage: 500 UG, TID (CONTINUE FROM 3RD DAY)
     Route: 058
  3. OCTREOTIDE ACETATE [Suspect]
     Dosage: 250 UG, BID  (ON DAY 2)
     Route: 058

REACTIONS (2)
  - DEATH [None]
  - NEOPLASM MALIGNANT [None]
